FAERS Safety Report 5657366-4 (Version None)
Quarter: 2008Q1

REPORT INFORMATION
  Report Type: 
  Country: None (occurrence: None)
  Receive Date: 20080310
  Receipt Date: 20080229
  Transmission Date: 20080703
  Serious: Yes (Other)
  Sender: FDA-Public Use
  Company Number: PHHY2008BR02464

PATIENT
  Age: 80 Year
  Sex: Female

DRUGS (1)
  1. EXELON [Suspect]
     Indication: MEMORY IMPAIRMENT
     Dosage: 1 MG, BID

REACTIONS (8)
  - BITE [None]
  - BLOOD PRESSURE INCREASED [None]
  - DYSPNOEA [None]
  - DYSSTASIA [None]
  - SENSORY LOSS [None]
  - SKIN DISCOLOURATION [None]
  - SYNCOPE [None]
  - TREMOR [None]
